FAERS Safety Report 4581993-9 (Version None)
Quarter: 2005Q1

REPORT INFORMATION
  Report Type: 
  Country: None (occurrence: None)
  Receive Date: 20050119
  Receipt Date: 20041012
  Transmission Date: 20050727
  Serious: Yes (Other)
  Sender: FDA-Public Use
  Company Number: US-JNJFOC-20040907345

PATIENT
  Age: 47 Year
  Sex: Female
  Weight: 106.1417 kg

DRUGS (9)
  1. DOXIL [Suspect]
     Indication: UTERINE CANCER
     Dosage: 50 MG/M2, INTRAVENOUS
     Route: 042
     Dates: start: 20040915, end: 20040915
  2. COMBIVENT [Concomitant]
  3. AZMACORT [Concomitant]
  4. ATACAND [Concomitant]
  5. FLONASE [Concomitant]
  6. REGLAN [Concomitant]
  7. PEPCID [Concomitant]
  8. ZYRTEC [Concomitant]
  9. SPIRONOLACTONE [Concomitant]

REACTIONS (1)
  - INFUSION RELATED REACTION [None]
